FAERS Safety Report 5191275-2 (Version None)
Quarter: 2006Q4

REPORT INFORMATION
  Report Type: 
  Country: None (occurrence: None)
  Receive Date: 20061220
  Receipt Date: 20061220
  Transmission Date: 20070319
  Serious: Yes (Death)
  Sender: FDA-Public Use
  Company Number: None

PATIENT
  Age: 63 Year
  Sex: Female
  Weight: 67.1324 kg

DRUGS (4)
  1. FLUDARABINE [Suspect]
     Indication: ACUTE MYELOID LEUKAEMIA
     Dosage: 24 MG OVER 30 MIN. DAILY X 5 D IV
     Route: 042
     Dates: start: 20060914, end: 20060918
  2. CARBOPLATIN [Suspect]
     Indication: ACUTE MYELOID LEUKAEMIA
     Dosage: 230 MG OVER 24 HRS X 5 DOSES IV
     Route: 042
     Dates: start: 20060914, end: 20060919
  3. TOPOTECAN  0.85 MG/M2/DAY [Suspect]
     Indication: ACUTE MYELOID LEUKAEMIA
     Dosage: 1.4  OVER 24 HRS. X 3 DOSES IV
     Route: 042
     Dates: start: 20060919, end: 20060922
  4. THALIDOMIDE [Suspect]
     Indication: ACUTE MYELOID LEUKAEMIA
     Dosage: 200 MG QD PO
     Route: 048
     Dates: start: 20060907, end: 20060915

REACTIONS (4)
  - MULTI-ORGAN FAILURE [None]
  - NEUTROPENIA [None]
  - PLATELET COUNT ABNORMAL [None]
  - WHITE BLOOD CELL COUNT DECREASED [None]
